FAERS Safety Report 24760071 (Version 1)
Quarter: 2024Q4

REPORT INFORMATION
  Report Type: Spontaneous
  Country: US (occurrence: None)
  Receive Date: 20241219
  Receipt Date: 20241219
  Transmission Date: 20250114
  Serious: No
  Sender: Public
  Company Number: None

PATIENT
  Age: 29 Year
  Sex: Female
  Weight: 79.3 kg

DRUGS (7)
  1. INFUVITE ADULT [Suspect]
     Active Substance: .ALPHA.-TOCOPHEROL ACETATE\ASCORBIC ACID\BIOTIN\CHOLECALCIFEROL\CYANOCOBALAMIN\DEXPANTHENOL\FOLIC AC
     Indication: Hyperemesis gravidarum
     Dosage: OTHER FREQUENCY : ONCE;?
     Route: 042
     Dates: start: 20241115, end: 20241115
  2. THIAMINE [Suspect]
     Active Substance: THIAMINE
     Indication: Hyperemesis gravidarum
     Dosage: OTHER FREQUENCY : ONCE;?
     Route: 042
     Dates: start: 20241115, end: 20241115
  3. ondansetron 4 mg ODT 1 tab po q6h prn n/v [Concomitant]
     Dates: start: 20240726
  4. Advair 100-50 mcg/act; pt states not taking [Concomitant]
     Dates: start: 20240726
  5. metoclopramide 5 mg tab; 1 tab po qid [Concomitant]
     Dates: start: 20241104
  6. amitriptyline 25 mg; 1 tab po qhs [Concomitant]
     Dates: start: 20240726
  7. albuterol inhaler 1-2 puffs prn sob [Concomitant]
     Dates: start: 20240709

REACTIONS (7)
  - Maternal exposure during pregnancy [None]
  - Infusion related reaction [None]
  - Flushing [None]
  - Dyspnoea [None]
  - Feeling hot [None]
  - Oxygen saturation decreased [None]
  - Hypopnoea [None]

NARRATIVE: CASE EVENT DATE: 20241115
